APPROVED DRUG PRODUCT: HYDRALAZINE HYDROCHLORIDE
Active Ingredient: HYDRALAZINE HYDROCHLORIDE
Strength: 50MG
Dosage Form/Route: TABLET;ORAL
Application: A090255 | Product #003
Applicant: INVAGEN PHARMACEUTICALS INC
Approved: Dec 15, 2008 | RLD: No | RS: No | Type: DISCN